FAERS Safety Report 7680153-2 (Version None)
Quarter: 2011Q3

REPORT INFORMATION
  Report Type: 
  Country: None (occurrence: None)
  Receive Date: 20110812
  Receipt Date: 20110808
  Transmission Date: 20111222
  Serious: Yes (Other)
  Sender: FDA-Public Use
  Company Number: AU-ROCHE-795655

PATIENT
  Age: 28 Year
  Sex: Male

DRUGS (3)
  1. ROCEPHIN [Suspect]
     Route: 065
     Dates: start: 20110608, end: 20110609
  2. FLOXACILLIN SODIUM [Suspect]
     Route: 065
     Dates: start: 20110607, end: 20110608
  3. VANCOMYCIN HYCHLORIDE [Suspect]
     Route: 065
     Dates: start: 20110607, end: 20110608

REACTIONS (2)
  - RENAL FAILURE ACUTE [None]
  - BACK PAIN [None]
